FAERS Safety Report 23541482 (Version 1)
Quarter: 2024Q1

REPORT INFORMATION
  Report Type: Spontaneous
  Country: ZA (occurrence: ZA)
  Receive Date: 20240219
  Receipt Date: 20240219
  Transmission Date: 20240409
  Serious: Yes (Death)
  Sender: FDA-Public Use
  Company Number: ZA-ABBOTT-2024A-1377825

PATIENT
  Age: 67 Year
  Sex: Male

DRUGS (6)
  1. FENOFIBRATE [Suspect]
     Active Substance: FENOFIBRATE
     Indication: Blood cholesterol
     Route: 048
  2. Pendine [Concomitant]
     Indication: Product used for unknown indication
     Dosage: PENDINE 5 MG DAILY
  3. BISOPROLOL FUMARATE [Concomitant]
     Active Substance: BISOPROLOL FUMARATE
     Indication: Hypertension
     Dosage: BILOCOR 5 MG A HALF A TABLET DAILY
     Route: 048
  4. Uromax [Concomitant]
     Indication: Prostatomegaly
     Dosage: UROMAX 0.4 MG DAILY
     Route: 048
  5. BROMAZEPAM [Concomitant]
     Active Substance: BROMAZEPAM
     Indication: Anxiety
     Dosage: BRAZEPAM 6 MG A HALF A TABLET TWICE A DAY
     Route: 048
  6. CRESAGEN [Concomitant]
     Indication: Blood cholesterol
     Route: 048

REACTIONS (1)
  - Death [Fatal]

NARRATIVE: CASE EVENT DATE: 20240101
